FAERS Safety Report 19057375 (Version 1)
Quarter: 2021Q1

REPORT INFORMATION
  Report Type: Report from Study
  Country: US (occurrence: US)
  Receive Date: 20210325
  Receipt Date: 20210325
  Transmission Date: 20210420
  Serious: Yes (Hospitalization, Other)
  Sender: FDA-Public Use
  Company Number: US-TAKEDA-2021TUS016695

PATIENT
  Sex: Male

DRUGS (1)
  1. VEDOLIZUMAB [Suspect]
     Active Substance: VEDOLIZUMAB
     Indication: COLITIS ULCERATIVE
     Dosage: 300 MILLIGRAM
     Route: 042

REACTIONS (5)
  - Drug specific antibody present [Recovered/Resolved]
  - Blood pressure increased [Recovered/Resolved]
  - Skin discolouration [Recovered/Resolved]
  - Blindness [Recovered/Resolved]
  - Fluid retention [Recovered/Resolved]
